FAERS Safety Report 11021668 (Version 6)
Quarter: 2016Q1

REPORT INFORMATION
  Report Type: Report from Study
  Country: US (occurrence: US)
  Receive Date: 20150413
  Receipt Date: 20160317
  Transmission Date: 20160525
  Serious: Yes (Life-Threatening, Other)
  Sender: FDA-Public Use
  Company Number: US-SA-2015SA014136

PATIENT
  Age: 46 Year
  Sex: Male

DRUGS (2)
  1. AUBAGIO [Suspect]
     Active Substance: TERIFLUNOMIDE
     Indication: MULTIPLE SCLEROSIS
     Route: 048
     Dates: end: 201602
  2. AUBAGIO [Suspect]
     Active Substance: TERIFLUNOMIDE
     Indication: MULTIPLE SCLEROSIS
     Route: 048
     Dates: start: 20150117

REACTIONS (11)
  - Suicidal ideation [Unknown]
  - Speech disorder [Unknown]
  - Treatment noncompliance [Unknown]
  - Disorientation [Unknown]
  - Muscular weakness [Not Recovered/Not Resolved]
  - Performance status decreased [Unknown]
  - Confusional state [Unknown]
  - Memory impairment [Unknown]
  - Unevaluable event [Not Recovered/Not Resolved]
  - Cognitive disorder [Unknown]
  - Dyskinesia [Unknown]

NARRATIVE: CASE EVENT DATE: 2015
